FAERS Safety Report 9025652 (Version 1)
Quarter: 2013Q1

REPORT INFORMATION
  Report Type: Spontaneous
  Country: US (occurrence: US)
  Receive Date: 20130123
  Receipt Date: 20130123
  Transmission Date: 20140127
  Serious: No
  Sender: FDA-Public Use
  Company Number: US-009507513-1301USA009167

PATIENT
  Age: 24 Year
  Sex: Female

DRUGS (5)
  1. IMPLANON [Suspect]
     Indication: CONTRACEPTION
     Dosage: UNK
     Dates: start: 201101
  2. ORACEA [Concomitant]
  3. HYDROCODONE [Concomitant]
  4. LORATADINE [Concomitant]
  5. PHENTERMINE [Concomitant]

REACTIONS (1)
  - Vasculitis [Unknown]
